FAERS Safety Report 17287606 (Version 1)
Quarter: 2020Q1

REPORT INFORMATION
  Report Type: Spontaneous
  Country: GB (occurrence: GB)
  Receive Date: 20200120
  Receipt Date: 20200120
  Transmission Date: 20200409
  Serious: Yes (Other)
  Sender: FDA-Public Use
  Company Number: GB-TEVA-2020-GB-1169252

PATIENT
  Age: 32 Year
  Sex: Female
  Weight: 69.85 kg

DRUGS (1)
  1. NITROFURANTOIN. [Suspect]
     Active Substance: NITROFURANTOIN
     Indication: ANTIBIOTIC PROPHYLAXIS
     Dosage: 50 MG
     Route: 048
     Dates: start: 20191215, end: 20191216

REACTIONS (6)
  - Salivary gland pain [Recovered/Resolved]
  - Pain in jaw [Recovered/Resolved]
  - Glossodynia [Recovered/Resolved]
  - Neck pain [Recovered/Resolved]
  - Malaise [Recovered/Resolved]
  - Noninfective sialoadenitis [Recovered/Resolved]

NARRATIVE: CASE EVENT DATE: 20191215
